FAERS Safety Report 12504667 (Version 1)
Quarter: 2016Q2

REPORT INFORMATION
  Report Type: Spontaneous
  Country: SI (occurrence: SI)
  Receive Date: 20160628
  Receipt Date: 20160628
  Transmission Date: 20160815
  Serious: Yes (Hospitalization, Other)
  Sender: FDA-Public Use
  Company Number: SI-IMPAX LABORATORIES, INC-2016-IPXL-00648

PATIENT
  Age: 76 Year
  Sex: Female

DRUGS (1)
  1. CHLOROQUINE PHOSPHATE. [Suspect]
     Active Substance: CHLOROQUINE PHOSPHATE
     Indication: SJOGREN^S SYNDROME
     Dosage: 250 MG, DAILY
     Route: 065

REACTIONS (4)
  - Right-to-left cardiac shunt [Recovered/Resolved]
  - Atrioventricular block [Recovered/Resolved]
  - Restrictive cardiomyopathy [Recovered/Resolved]
  - Right ventricular failure [Recovered/Resolved]
